FAERS Safety Report 5312225-1 (Version None)
Quarter: 2007Q2

REPORT INFORMATION
  Report Type: 
  Country: None (occurrence: None)
  Receive Date: 20070430
  Receipt Date: 20061110
  Transmission Date: 20071010
  Serious: No
  Sender: FDA-Public Use
  Company Number: 2006UW19013

PATIENT
  Age: 81 Year
  Sex: Female
  Weight: 70.3 kg

DRUGS (7)
  1. NEXIUM [Suspect]
     Indication: GASTROOESOPHAGEAL REFLUX DISEASE
     Route: 048
  2. NEXIUM [Suspect]
     Route: 048
  3. NEXIUM [Suspect]
     Route: 048
     Dates: start: 20061110
  4. NEXIUM [Suspect]
     Route: 048
     Dates: start: 20061110
  5. ACETYLSALICYLIC ACID SRT [Concomitant]
  6. CLARANTIN [Concomitant]
  7. ALEVE [Concomitant]
     Indication: BACK DISORDER

REACTIONS (3)
  - DRUG INEFFECTIVE [None]
  - INCREASED UPPER AIRWAY SECRETION [None]
  - NAUSEA [None]
